FAERS Safety Report 11500018 (Version 1)
Quarter: 2015Q3

REPORT INFORMATION
  Report Type: Spontaneous
  Country: GB (occurrence: None)
  Receive Date: 20150910
  Receipt Date: 20150910
  Transmission Date: 20151125
  Serious: Yes (Other)
  Sender: FDA-Public Use
  Company Number: 2015-001891

PATIENT
  Age: 37 Year
  Sex: Female

DRUGS (2)
  1. MESALAZINE (MESALAZINE) UNKNOWN [Suspect]
     Active Substance: MESALAMINE
     Indication: INFLAMMATORY BOWEL DISEASE
     Dates: start: 2009, end: 200908
  2. VEDOLIZUMAB [Concomitant]
     Active Substance: VEDOLIZUMAB

REACTIONS (5)
  - Corneal infection [None]
  - Eye infection viral [None]
  - Contusion [None]
  - Blood test abnormal [None]
  - Photophobia [None]
